FAERS Safety Report 10424630 (Version 2)
Quarter: 2014Q4

REPORT INFORMATION
  Report Type: Spontaneous
  Country: IT (occurrence: IT)
  Receive Date: 20140902
  Receipt Date: 20141230
  Transmission Date: 20150528
  Serious: Yes (Hospitalization)
  Sender: FDA-Public Use
  Company Number: IT-PFIZER INC-2014243303

PATIENT
  Age: 47 Year
  Sex: Male

DRUGS (3)
  1. XANAX [Suspect]
     Active Substance: ALPRAZOLAM
     Dosage: 28 DF, SINGLE
     Route: 048
     Dates: start: 20140816, end: 20140816
  2. LORAZEPAM. [Suspect]
     Active Substance: LORAZEPAM
     Dosage: 15 ML, SINGLE
     Route: 048
     Dates: start: 20140816, end: 20140816
  3. FLURAZEPAM HYDROCHLORIDE. [Suspect]
     Active Substance: FLURAZEPAM HYDROCHLORIDE
     Dosage: 29 DF, SINGLE
     Route: 048
     Dates: start: 20140816, end: 20140816

REACTIONS (4)
  - Intentional overdose [Recovering/Resolving]
  - Suicide attempt [Unknown]
  - Bradykinesia [Recovering/Resolving]
  - Bradyphrenia [Recovering/Resolving]

NARRATIVE: CASE EVENT DATE: 20140816
